FAERS Safety Report 8836371 (Version 1)
Quarter: 2012Q4

REPORT INFORMATION
  Report Type: 
  Country: US (occurrence: US)
  Receive Date: 20121011
  Receipt Date: 20121011
  Transmission Date: 20130627
  Serious: No
  Sender: FDA-Public Use
  Company Number: US-NOVEN-12US005015

PATIENT

DRUGS (3)
  1. FENTANYL [Suspect]
     Indication: BACK PAIN
     Dosage: 100 ug/hr q 72 hours
     Route: 062
     Dates: start: 2011
  2. FENTANYL [Suspect]
     Indication: PAIN IN EXTREMITY
  3. SEIZURE MEDICATION [Concomitant]
     Indication: BREAKTHROUGH PAIN
     Route: 048

REACTIONS (4)
  - Drug withdrawal syndrome [Recovered/Resolved]
  - Insomnia [Recovered/Resolved]
  - Inadequate analgesia [Recovered/Resolved]
  - Product quality issue [None]
